FAERS Safety Report 16091322 (Version 1)
Quarter: 2019Q1

REPORT INFORMATION
  Report Type: Spontaneous
  Country: US (occurrence: US)
  Receive Date: 20190319
  Receipt Date: 20190319
  Transmission Date: 20190418
  Serious: No
  Sender: FDA-Public Use
  Company Number: US-PFIZER INC-2019035459

PATIENT
  Age: 73 Year
  Sex: Female

DRUGS (4)
  1. PRISTIQ EXTENDED-RELEASE [Suspect]
     Active Substance: DESVENLAFAXINE SUCCINATE
     Indication: DEPRESSION
     Dosage: 50 MG, 1X/DAY FOR 2 WEEKS (THEN 2 TABS, DAILY)
     Route: 048
  2. KETAMINE [Concomitant]
     Active Substance: KETAMINE
     Dosage: UNK
  3. PRISTIQ EXTENDED-RELEASE [Suspect]
     Active Substance: DESVENLAFAXINE SUCCINATE
     Indication: ANXIETY
  4. XANAX [Concomitant]
     Active Substance: ALPRAZOLAM
     Dosage: UNK

REACTIONS (10)
  - Constipation [Unknown]
  - Depression [Unknown]
  - Anxiety [Unknown]
  - Migraine [Unknown]
  - Nausea [Unknown]
  - Condition aggravated [Unknown]
  - Tremor [Unknown]
  - Dizziness [Unknown]
  - Panic disorder [Unknown]
  - Presyncope [Unknown]
